FAERS Safety Report 9381866 (Version 2)
Quarter: 2013Q3

REPORT INFORMATION
  Report Type: Report from Study
  Country: US (occurrence: US)
  Receive Date: 20130703
  Receipt Date: 20130722
  Transmission Date: 20140515
  Serious: Yes (Death)
  Sender: FDA-Public Use
  Company Number: PHEH2013US014187

PATIENT
  Sex: Male

DRUGS (3)
  1. AFINITOR [Suspect]
     Indication: RENAL CANCER
     Dosage: 5 MG, QD
     Route: 048
     Dates: start: 20110923, end: 20130522
  2. AFINITOR [Suspect]
     Dates: start: 20130701
  3. VOTRIENT [Suspect]
     Indication: RENAL CANCER
     Dosage: 200 MG, UNK
     Route: 048
     Dates: start: 20110923, end: 20130522

REACTIONS (1)
  - Death [Fatal]
